FAERS Safety Report 10224669 (Version 2)
Quarter: 2014Q2

REPORT INFORMATION
  Report Type: Report from Study
  Country: US (occurrence: US)
  Receive Date: 20140609
  Receipt Date: 20140609
  Transmission Date: 20141212
  Serious: Yes (Hospitalization)
  Sender: FDA-Public Use
  Company Number: US-SA-2014SA054025

PATIENT
  Age: 75 Year
  Sex: Male

DRUGS (6)
  1. AUBAGIO [Suspect]
     Indication: MULTIPLE SCLEROSIS
     Route: 048
     Dates: start: 20140401
  2. AUBAGIO [Suspect]
     Indication: MULTIPLE SCLEROSIS
     Route: 048
     Dates: start: 20140408, end: 20140524
  3. OXYCODONE [Concomitant]
     Indication: PAIN
  4. SODIUM BICARBONATE [Concomitant]
  5. HYDROMORPHONE [Concomitant]
     Indication: PAIN
  6. METHOCARBAMOL [Concomitant]

REACTIONS (9)
  - Hip fracture [Unknown]
  - Fall [Unknown]
  - Gait disturbance [Unknown]
  - Decreased appetite [Unknown]
  - Dizziness [Unknown]
  - Gait disturbance [Unknown]
  - Back pain [Recovering/Resolving]
  - Nausea [Unknown]
  - Weight decreased [Unknown]
